FAERS Safety Report 7749784-5 (Version None)
Quarter: 2011Q3

REPORT INFORMATION
  Report Type: 
  Country: None (occurrence: None)
  Receive Date: 20110914
  Receipt Date: 20110905
  Transmission Date: 20111222
  Serious: Yes (Hospitalization)
  Sender: FDA-Public Use
  Company Number: JP-BRISTOL-MYERS SQUIBB COMPANY-15430465

PATIENT
  Age: 29 Year
  Sex: Male

DRUGS (3)
  1. EFAVIRENZ [Suspect]
     Indication: HIV TEST POSITIVE
     Dosage: TABS 200.
     Route: 048
     Dates: start: 20100126, end: 20100126
  2. TRUVADA [Suspect]
     Indication: HIV TEST POSITIVE
     Dosage: 1DF=30 TABLETS.UNIT NOT SPECIFIED. FORMULATION IS TAB
     Route: 048
     Dates: start: 20100126, end: 20100126
  3. ISENTRESS [Concomitant]
     Indication: HIV INFECTION
     Route: 048

REACTIONS (5)
  - MULTIPLE DRUG OVERDOSE INTENTIONAL [None]
  - DRUG LEVEL INCREASED [None]
  - BLOOD CREATINE PHOSPHOKINASE INCREASED [None]
  - SUICIDE ATTEMPT [None]
  - PSYCHIATRIC SYMPTOM [None]
